FAERS Safety Report 6356812-0 (Version None)
Quarter: 2009Q3

REPORT INFORMATION
  Report Type: 
  Country: None (occurrence: None)
  Receive Date: 20090911
  Receipt Date: 20090911
  Transmission Date: 20100115
  Serious: Yes (Other)
  Sender: FDA-Public Use
  Company Number: None

PATIENT
  Age: 65 Year
  Sex: Female
  Weight: 67.1324 kg

DRUGS (3)
  1. LISINOPRIL [Suspect]
     Indication: HYPERTENSION
     Dosage: 1 A DAY EVERY DAY
     Dates: start: 20090622, end: 20090821
  2. METFORMIN HCL [Suspect]
     Indication: DIABETES MELLITUS
     Dosage: 2 A DAY
     Dates: start: 20090622, end: 20090821
  3. SIMVASTATIN [Suspect]
     Indication: BLOOD CHOLESTEROL
     Dosage: 1 A DAY EVERY DAY
     Dates: start: 20090622, end: 20090821

REACTIONS (9)
  - ALOPECIA [None]
  - ARTHRALGIA [None]
  - DIZZINESS [None]
  - FATIGUE [None]
  - HAIR COLOUR CHANGES [None]
  - MALAISE [None]
  - MYALGIA [None]
  - PHOTOSENSITIVITY REACTION [None]
  - RESPIRATORY DISORDER [None]
